FAERS Safety Report 7594540-4 (Version None)
Quarter: 2011Q2

REPORT INFORMATION
  Report Type: 
  Country: None (occurrence: None)
  Receive Date: 20110628
  Receipt Date: 20110623
  Transmission Date: 20111010
  Serious: Yes (Hospitalization, Other)
  Sender: FDA-Public Use
  Company Number: 201110625

PATIENT
  Sex: Male

DRUGS (2)
  1. LIORESAL [Suspect]
     Indication: MUSCLE SPASTICITY
     Dosage: MCG, DAILY, INTRATHECAL
     Route: 037
  2. MORPHINE [Concomitant]

REACTIONS (35)
  - CONVULSION [None]
  - DEVICE EXTRUSION [None]
  - MUSCLE SPASTICITY [None]
  - PERIPHERAL COLDNESS [None]
  - LUNG DISORDER [None]
  - HYPOAESTHESIA [None]
  - HYPERSENSITIVITY [None]
  - CONDITION AGGRAVATED [None]
  - MUSCLE SPASMS [None]
  - ARTERIOSPASM CORONARY [None]
  - URTICARIA [None]
  - DEVICE OCCLUSION [None]
  - COLD SWEAT [None]
  - TINNITUS [None]
  - OROPHARYNGEAL SPASM [None]
  - PYREXIA [None]
  - INSOMNIA [None]
  - EYE IRRITATION [None]
  - MEDICAL DEVICE COMPLICATION [None]
  - GRANULOMA [None]
  - WEIGHT DECREASED [None]
  - DEVICE RELATED INFECTION [None]
  - VOMITING [None]
  - NIGHT SWEATS [None]
  - ABDOMINAL DISCOMFORT [None]
  - WITHDRAWAL SYNDROME [None]
  - PRURITUS [None]
  - PARAESTHESIA [None]
  - HYPERTENSION [None]
  - DEVICE DISLOCATION [None]
  - HYPOPNOEA [None]
  - BURNING SENSATION [None]
  - APHAGIA [None]
  - THERAPEUTIC PRODUCT INEFFECTIVE [None]
  - DIARRHOEA [None]
